FAERS Safety Report 19813594 (Version 3)
Quarter: 2021Q4

REPORT INFORMATION
  Report Type: Report from Study
  Country: CO (occurrence: CO)
  Receive Date: 20210910
  Receipt Date: 20211125
  Transmission Date: 20220304
  Serious: Yes (Other)
  Sender: FDA-Public Use
  Company Number: NVSC2021CO172660

PATIENT
  Sex: Female
  Weight: 71 kg

DRUGS (5)
  1. LUCENTIS [Suspect]
     Active Substance: RANIBIZUMAB
     Indication: Diabetic retinopathy
     Dosage: 10 MG, QMO
     Route: 047
     Dates: start: 202107
  2. METFORMIN [Suspect]
     Active Substance: METFORMIN HYDROCHLORIDE
     Indication: Diabetes mellitus
     Dosage: UNK UNK, QD (START DATE MORE THAN 20 YEARS AGO)
     Route: 048
  3. LEVOTHYROXINE [Concomitant]
     Active Substance: LEVOTHYROXINE
     Indication: Thyroid disorder
     Dosage: 100 MG, QD (START DATE: 2 YEARS AGO)
     Route: 048
  4. LANTUS [Concomitant]
     Active Substance: INSULIN GLARGINE
     Indication: Diabetes mellitus
     Dosage: UNK UNK, QD (START DATE 15 YEARS AGO)
     Route: 058
  5. INSULIN ASPART [Concomitant]
     Active Substance: INSULIN ASPART
     Indication: Diabetes mellitus
     Dosage: 10 UNITS (START DATE 15 YEARS AGO)
     Route: 058

REACTIONS (5)
  - Blindness [Unknown]
  - Eye haemorrhage [Unknown]
  - Eye disorder [Not Recovered/Not Resolved]
  - Incorrect dose administered [Unknown]
  - Vision blurred [Unknown]
